FAERS Safety Report 10155360 (Version 1)
Quarter: 2014Q2

REPORT INFORMATION
  Report Type: Spontaneous
  Country: US (occurrence: US)
  Receive Date: 20140506
  Receipt Date: 20140506
  Transmission Date: 20141212
  Serious: Yes (Other)
  Sender: FDA-Public Use
  Company Number: US-MALLINCKRODT-T201402042

PATIENT
  Age: 50 Year
  Sex: Male
  Weight: 139.68 kg

DRUGS (1)
  1. OPTIMARK IN PLASTIC SYRINGES [Suspect]
     Indication: NUCLEAR MAGNETIC RESONANCE IMAGING
     Dosage: 20 ML, SINGLE
     Route: 042
     Dates: start: 20140429, end: 20140429

REACTIONS (2)
  - Swollen tongue [Recovered/Resolved]
  - Dyspnoea [Recovered/Resolved]
